FAERS Safety Report 23488733 (Version 1)
Quarter: 2024Q1

REPORT INFORMATION
  Report Type: Spontaneous
  Country: US (occurrence: US)
  Receive Date: 20240206
  Receipt Date: 20240206
  Transmission Date: 20240410
  Serious: No
  Sender: FDA-Public Use
  Company Number: US-PFIZER INC-PV202400017639

PATIENT
  Age: 65 Year

DRUGS (1)
  1. IBRANCE [Suspect]
     Active Substance: PALBOCICLIB
     Indication: Breast cancer
     Dosage: TAKE 1 BY MOUTH ONCE DAILY FOR 21 DAYS THEN OFF 7 DAYS.
     Route: 048

REACTIONS (1)
  - Neoplasm progression [Unknown]
